FAERS Safety Report 11839218 (Version 1)
Quarter: 2015Q4

REPORT INFORMATION
  Report Type: Spontaneous
  Country: US (occurrence: US)
  Receive Date: 20151216
  Receipt Date: 20151216
  Transmission Date: 20160305
  Serious: Yes (Other)
  Sender: FDA-Public Use
  Company Number: US-TEVA-546988USA

PATIENT
  Age: 89 Year
  Sex: Female

DRUGS (3)
  1. FLUTICASONE PROPIONATE. [Concomitant]
     Active Substance: FLUTICASONE PROPIONATE
     Dosage: USES EACH DAY
     Route: 045
  2. DILTIAZEM [Suspect]
     Active Substance: DILTIAZEM
     Indication: HYPERTENSION
     Dosage: 240 MG AND 300 MG
     Route: 065
     Dates: start: 2013, end: 201406
  3. DILTIAZEM [Suspect]
     Active Substance: DILTIAZEM
     Route: 065

REACTIONS (2)
  - Hypertension [Unknown]
  - Drug ineffective [Unknown]
